FAERS Safety Report 13961364 (Version 1)
Quarter: 2017Q3

REPORT INFORMATION
  Report Type: Spontaneous
  Country: US (occurrence: None)
  Receive Date: 20170912
  Receipt Date: 20170912
  Transmission Date: 20171128
  Serious: Yes (Death)
  Sender: FDA-Public Use
  Company Number: None

PATIENT

DRUGS (1)
  1. SENNA SYRUP NATURAL VEGETABLE LAXATIVE (SENNOSIDES A AND B) [Suspect]
     Active Substance: SENNOSIDES A AND B
     Indication: CONSTIPATION

REACTIONS (1)
  - Pyrexia [None]

NARRATIVE: CASE EVENT DATE: 20170907
